FAERS Safety Report 13367427 (Version 1)
Quarter: 2017Q1

REPORT INFORMATION
  Report Type: Spontaneous
  Country: US (occurrence: US)
  Receive Date: 20170323
  Receipt Date: 20170323
  Transmission Date: 20170429
  Serious: No
  Sender: FDA-Public Use
  Company Number: None

PATIENT
  Age: 75 Year
  Sex: Female
  Weight: 57.6 kg

DRUGS (4)
  1. GEMFIBROZIL TABS 600MG [Suspect]
     Active Substance: GEMFIBROZIL
     Indication: BLOOD CHOLESTEROL INCREASED
     Dosage: ?          QUANTITY:1 TABLET(S);?
     Route: 048
  2. BABY ASPIRIN [Concomitant]
     Active Substance: ASPIRIN
  3. FENOFIBRATE. [Concomitant]
     Active Substance: FENOFIBRATE
  4. VITAMIN D [Concomitant]
     Active Substance: CHOLECALCIFEROL

REACTIONS (5)
  - Dizziness [None]
  - Nausea [None]
  - Dyspepsia [None]
  - Sleep disorder [None]
  - Abdominal pain upper [None]

NARRATIVE: CASE EVENT DATE: 20170123
